FAERS Safety Report 6282771-5 (Version None)
Quarter: 2009Q3

REPORT INFORMATION
  Report Type: 
  Country: None (occurrence: None)
  Receive Date: 20090724
  Receipt Date: 20090703
  Transmission Date: 20100115
  Serious: Yes (Disabling, Other)
  Sender: FDA-Public Use
  Company Number: JP-PFIZER INC-2009233948

PATIENT
  Age: 68 Year

DRUGS (7)
  1. ZITHROMAX [Suspect]
     Indication: BRONCHITIS
     Dosage: 500 MG, 1X/DAY
     Route: 048
     Dates: start: 20090415, end: 20090417
  2. HOKUNALIN [Suspect]
     Indication: BRONCHITIS
     Route: 062
     Dates: start: 20090415, end: 20090422
  3. ALLEGRA [Suspect]
     Indication: RHINITIS ALLERGIC
     Route: 048
  4. ALLELOCK [Suspect]
     Indication: RHINITIS ALLERGIC
     Route: 048
  5. ZESULAN [Suspect]
     Indication: RHINITIS ALLERGIC
     Route: 048
  6. MEDICON [Concomitant]
     Route: 048
     Dates: start: 20090415, end: 20090421
  7. AMBROXOL HYDROCHLORIDE [Concomitant]
     Dosage: UNK
     Route: 048
     Dates: start: 20090415, end: 20090421

REACTIONS (1)
  - DYSGEUSIA [None]
